FAERS Safety Report 4480662-3 (Version None)
Quarter: 2004Q4

REPORT INFORMATION
  Report Type: 
  Country: None (occurrence: None)
  Receive Date: 20041019
  Receipt Date: 20041004
  Transmission Date: 20050328
  Serious: Yes (Hospitalization)
  Sender: FDA-Public Use
  Company Number: 2004-BP-06939NB

PATIENT
  Age: 61 Year
  Sex: Male

DRUGS (6)
  1. MICARDIS [Suspect]
     Indication: HYPERTENSION
     Dosage: 20 MG (20 MG), PO
     Route: 048
     Dates: start: 20040529, end: 20040705
  2. LANIRAPID (METILDIGOXIN) (TA) [Suspect]
     Indication: CARDIAC FAILURE
     Dosage: 0.05 MG, PO
     Route: 048
     Dates: start: 20040618
  3. LASIX [Concomitant]
  4. CIBENOL (CIBENZOLINE SUCCINATE) (TA) [Concomitant]
  5. WARFARIN (WARFARIN) (TA) [Concomitant]
  6. ARTIST (CARVEDILOL) (TA) [Concomitant]

REACTIONS (5)
  - HEPATIC FUNCTION ABNORMAL [None]
  - LIVER DISORDER [None]
  - PYREXIA [None]
  - RENAL DISORDER [None]
  - RENAL IMPAIRMENT [None]
